FAERS Safety Report 21917369 (Version 3)
Quarter: 2023Q2

REPORT INFORMATION
  Report Type: Report from Study
  Country: US (occurrence: US)
  Receive Date: 20230126
  Receipt Date: 20230515
  Transmission Date: 20230721
  Serious: Yes (Hospitalization)
  Sender: FDA-Public Use
  Company Number: US-ACADIA PHARMACEUTICALS INC.-ACA-2023-PIM-000043

PATIENT
  Age: 56 Year
  Sex: Male

DRUGS (25)
  1. NUPLAZID [Suspect]
     Active Substance: PIMAVANSERIN TARTRATE
     Indication: Parkinson^s disease psychosis
     Dosage: 34 MILLIGRAM, QD
     Route: 048
     Dates: start: 20221215, end: 20230409
  2. NUPLAZID [Suspect]
     Active Substance: PIMAVANSERIN TARTRATE
     Indication: Hallucination
  3. NUPLAZID [Suspect]
     Active Substance: PIMAVANSERIN TARTRATE
     Indication: Delusion
  4. NUPLAZID [Suspect]
     Active Substance: PIMAVANSERIN TARTRATE
     Indication: Hallucination
  5. NUPLAZID [Suspect]
     Active Substance: PIMAVANSERIN TARTRATE
     Indication: Psychotic disorder due to a general medical condition
  6. CLOZAPINE [Concomitant]
     Active Substance: CLOZAPINE
     Dosage: 25 MILLIGRAM
     Dates: start: 20221130, end: 20221207
  7. CLOZAPINE [Concomitant]
     Active Substance: CLOZAPINE
     Dosage: 12.5MG QD
     Dates: start: 20221215
  8. METHYL FOLATE [FOLIC ACID;MECOBALAMIN;PYRIDOXINE HYDROCHLORIDE] [Concomitant]
     Dosage: 400 MCG
  9. VITAMINS [Concomitant]
     Active Substance: VITAMINS
  10. PROSTATE SR [Concomitant]
     Dosage: 160-250 MG
  11. PYRIDOXINE HYDROCHLORIDE [Concomitant]
     Active Substance: PYRIDOXINE HYDROCHLORIDE
     Dosage: 50 MILLIGRAM
  12. DIAZEPAM [Concomitant]
     Active Substance: DIAZEPAM
     Dosage: 5 MILLIGRAM
  13. ELIQUIS [Concomitant]
     Active Substance: APIXABAN
     Dosage: 5 MILLIGRAM
  14. UNDERPADS MIS [Concomitant]
  15. DISPOSABLE B MIS [Concomitant]
  16. KLONOPIN [Concomitant]
     Active Substance: CLONAZEPAM
  17. LAMOTRIGINE [Concomitant]
     Active Substance: LAMOTRIGINE
  18. AMANTA [AMANTADINE HYDROCHLORIDE] [Concomitant]
  19. METOPROLOL [Concomitant]
     Active Substance: METOPROLOL
  20. LITHIUM [Concomitant]
     Active Substance: LITHIUM
     Dosage: 600 MILLIGRAM, QD ER GREAT THAN 1 YEAR
  21. LAMICTAL [Concomitant]
     Active Substance: LAMOTRIGINE
     Dosage: 100 MILLIGRAM QAM
  22. LAMICTAL [Concomitant]
     Active Substance: LAMOTRIGINE
     Dosage: 200 MILLIGRAM QAM MANY YEARS
  23. VALIUM [Concomitant]
     Active Substance: DIAZEPAM
     Dosage: 5 MILLIGRAM HALF AND 1 BID PRN
  24. BUSPAR [Concomitant]
     Active Substance: BUSPIRONE HYDROCHLORIDE
  25. MEMANTINE [Concomitant]
     Active Substance: MEMANTINE

REACTIONS (10)
  - Schizophrenia [Unknown]
  - Dementia with Lewy bodies [Unknown]
  - Anal incontinence [Not Recovered/Not Resolved]
  - Therapeutic response unexpected [Not Recovered/Not Resolved]
  - Muscular weakness [Not Recovered/Not Resolved]
  - Anger [Recovered/Resolved]
  - White blood cell count increased [Not Recovered/Not Resolved]
  - Gait inability [Not Recovered/Not Resolved]
  - Delusion [Not Recovered/Not Resolved]
  - Drug ineffective [Not Recovered/Not Resolved]

NARRATIVE: CASE EVENT DATE: 20220825
